FAERS Safety Report 23895555 (Version 1)
Quarter: 2024Q2

REPORT INFORMATION
  Report Type: Spontaneous
  Country: CN (occurrence: CN)
  Receive Date: 20240524
  Receipt Date: 20240524
  Transmission Date: 20240716
  Serious: Yes (Other)
  Sender: FDA-Public Use
  Company Number: CN-SUN PHARMACEUTICAL INDUSTRIES LTD-2024R1-447618

PATIENT
  Age: 65 Year
  Sex: Male

DRUGS (5)
  1. LEUPROLIDE [Suspect]
     Active Substance: LEUPROLIDE
     Indication: Metastases to bone
     Dosage: 3.75 MILLIGRAM, MONTHLY
     Route: 058
     Dates: start: 202212, end: 202302
  2. LEUPROLIDE [Suspect]
     Active Substance: LEUPROLIDE
     Indication: Prostate cancer
     Dosage: 11.25 MILLIGRAM, MONTHLY
     Route: 058
     Dates: start: 202303
  3. APALUTAMIDE [Suspect]
     Active Substance: APALUTAMIDE
     Indication: Prostate cancer
     Dosage: UNK UNK, DAILY
     Route: 065
  4. APALUTAMIDE [Suspect]
     Active Substance: APALUTAMIDE
     Indication: Metastases to bone
  5. METHYLPREDNISOLONE [Concomitant]
     Active Substance: METHYLPREDNISOLONE
     Indication: Prophylaxis
     Dosage: 40 MILLIGRAM, QD
     Route: 042

REACTIONS (1)
  - Organising pneumonia [Recovering/Resolving]
